FAERS Safety Report 6168241-3 (Version None)
Quarter: 2009Q2

REPORT INFORMATION
  Report Type: 
  Country: None (occurrence: None)
  Receive Date: 20090423
  Receipt Date: 20090423
  Transmission Date: 20091009
  Serious: Yes (Other)
  Sender: FDA-Public Use
  Company Number: None

PATIENT
  Age: 5 Month
  Sex: Male
  Weight: 7.2576 kg

DRUGS (1)
  1. OCEAN POTION SPF50 KIDS SUNBLOCK SUN + SKIN CARE RESEARCH, INC. [Suspect]
     Indication: PROPHYLAXIS AGAINST SOLAR RADIATION
     Dates: start: 20090325, end: 20090325

REACTIONS (1)
  - SUNBURN [None]
